FAERS Safety Report 20684624 (Version 1)
Quarter: 2022Q2

REPORT INFORMATION
  Report Type: Spontaneous
  Country: US (occurrence: US)
  Receive Date: 20220407
  Receipt Date: 20220407
  Transmission Date: 20220721
  Serious: No
  Sender: FDA-Public Use
  Company Number: US-PFIZER INC-202200169566

PATIENT
  Age: 73 Year
  Sex: Female
  Weight: 101 kg

DRUGS (5)
  1. LIDOCAINE HYDROCHLORIDE [Suspect]
     Active Substance: LIDOCAINE HYDROCHLORIDE
     Indication: Local anaesthesia
     Dosage: 5 ML, INJECTION
  2. BUPIVACAINE [Concomitant]
     Active Substance: BUPIVACAINE
     Dosage: UNK
  3. GLYBURIDE [Concomitant]
     Active Substance: GLYBURIDE
     Dosage: UNK
  4. CLONIDINE [Concomitant]
     Active Substance: CLONIDINE
     Dosage: UNK
  5. LOVASTATIN [Concomitant]
     Active Substance: LOVASTATIN
     Dosage: UNK

REACTIONS (1)
  - Dysgeusia [Recovered/Resolved]
